FAERS Safety Report 25838119 (Version 1)
Quarter: 2025Q3

REPORT INFORMATION
  Report Type: Spontaneous
  Country: PR (occurrence: PR)
  Receive Date: 20250923
  Receipt Date: 20250923
  Transmission Date: 20251021
  Serious: No
  Sender: ANI
  Company Number: PR-ANIPHARMA-2025-PR-000045

PATIENT
  Age: 61 Year
  Sex: Male
  Weight: 73.94 kg

DRUGS (11)
  1. CORTICOTROPIN [Suspect]
     Active Substance: CORTICOTROPIN
     Indication: Multiple sclerosis
     Route: 058
     Dates: end: 202503
  2. METFORMIN HYDROCHLORIDE [Concomitant]
     Active Substance: METFORMIN HYDROCHLORIDE
     Route: 048
  3. LISINOPRIL AND HYDROCHLOROTHIAZIDE [Concomitant]
     Active Substance: HYDROCHLOROTHIAZIDE\LISINOPRIL
     Route: 048
  4. XANAX [Concomitant]
     Active Substance: ALPRAZOLAM
     Route: 048
  5. Aspirin Delayed Releas [Concomitant]
     Route: 048
  6. OCREVUS [Concomitant]
     Active Substance: OCRELIZUMAB
     Route: 042
  7. BACLOFEN [Concomitant]
     Active Substance: BACLOFEN
     Route: 048
  8. ALPRAZOLAM [Concomitant]
     Active Substance: ALPRAZOLAM
     Route: 048
  9. Fluticasone Propionate Suspen [Concomitant]
     Route: 045
  10. Flovent HFA Inhalation Aerosol [Concomitant]
     Route: 055
  11. Dalfampridine ER Oral Tablet Extend [Concomitant]
     Route: 048

REACTIONS (1)
  - Abnormal weight gain [Unknown]
